FAERS Safety Report 12673978 (Version 7)
Quarter: 2019Q2

REPORT INFORMATION
  Report Type: Report from Study
  Country: US (occurrence: US)
  Receive Date: 20160822
  Receipt Date: 20190626
  Transmission Date: 20190711
  Serious: Yes (Other)
  Sender: FDA-Public Use
  Company Number: PHHY2016US113135

PATIENT
  Age: 49 Year
  Sex: Female

DRUGS (1)
  1. GILENYA [Suspect]
     Active Substance: FINGOLIMOD HYDROCHLORIDE
     Indication: MULTIPLE SCLEROSIS
     Dosage: UNK, QD
     Route: 048

REACTIONS (9)
  - Urinary tract infection [Recovered/Resolved]
  - CD4 lymphocytes decreased [Recovered/Resolved]
  - Plantar fasciitis [Unknown]
  - Melanocytic naevus [Recovered/Resolved]
  - Lymphocyte count decreased [Recovered/Resolved]
  - Colon adenoma [Recovered/Resolved]
  - Dysplastic naevus [Recovered/Resolved]
  - Urinary tract infection [Recovered/Resolved]
  - White blood cell count decreased [Recovering/Resolving]

NARRATIVE: CASE EVENT DATE: 20151217
